FAERS Safety Report 5884851-2 (Version None)
Quarter: 2008Q3

REPORT INFORMATION
  Report Type: 
  Country: None (occurrence: None)
  Receive Date: 20080916
  Receipt Date: 20080910
  Transmission Date: 20090109
  Serious: Yes (Hospitalization)
  Sender: FDA-Public Use
  Company Number: US-BAYER-200831001NA

PATIENT
  Age: 30 Year
  Sex: Female
  Weight: 54 kg

DRUGS (5)
  1. MIRENA [Suspect]
     Indication: CONTRACEPTION
     Route: 015
     Dates: start: 20080717, end: 20080802
  2. WELLBUTRIN [Concomitant]
     Indication: PANIC ATTACK
     Route: 048
  3. TOPAMAX [Concomitant]
     Indication: DRUG USE FOR UNKNOWN INDICATION
  4. LEXAPRO [Concomitant]
     Indication: PANIC ATTACK
     Route: 048
  5. XANAX [Concomitant]
     Indication: PANIC ATTACK

REACTIONS (3)
  - ABDOMINAL PAIN [None]
  - IUD MIGRATION [None]
  - PROCEDURAL PAIN [None]
